FAERS Safety Report 13654473 (Version 1)
Quarter: 2017Q2

REPORT INFORMATION
  Report Type: Spontaneous
  Country: US (occurrence: US)
  Receive Date: 20170615
  Receipt Date: 20170615
  Transmission Date: 20170830
  Serious: No
  Sender: FDA-Public Use
  Company Number: US-ZYDUS-013020

PATIENT
  Age: 46 Year
  Sex: Female

DRUGS (1)
  1. METFORMIN [Suspect]
     Active Substance: METFORMIN HYDROCHLORIDE
     Indication: POLYCYSTIC OVARIES
     Dosage: TWO TABLETS (1000 MG) EVERY MORNING AND ONE TABLET (500 MG) BY MOUTH IN THE EVENINGS TOTALING 1500MG
     Route: 048
     Dates: start: 201607, end: 20161124

REACTIONS (2)
  - Lethargy [Recovered/Resolved]
  - Alopecia [Recovered/Resolved]

NARRATIVE: CASE EVENT DATE: 201609
